FAERS Safety Report 23104442 (Version 2)
Quarter: 2023Q4

REPORT INFORMATION
  Report Type: Spontaneous
  Country: CN (occurrence: CN)
  Receive Date: 20231025
  Receipt Date: 20231027
  Transmission Date: 20240110
  Serious: No
  Sender: FDA-Public Use
  Company Number: CN-ORGANON-O2310CHN002532

PATIENT
  Age: 19 Year
  Sex: Male
  Weight: 104.5 kg

DRUGS (2)
  1. COZAAR [Suspect]
     Active Substance: LOSARTAN POTASSIUM
     Indication: Proteinuria
     Dosage: 0.1G, QD
     Route: 048
     Dates: start: 20230826, end: 20230827
  2. COZAAR [Suspect]
     Active Substance: LOSARTAN POTASSIUM
     Dosage: 0.05G(QD)
     Route: 048
     Dates: start: 20230827, end: 20230828

REACTIONS (3)
  - Fall [Recovered/Resolved]
  - Dizziness [Recovering/Resolving]
  - Product use in unapproved indication [Unknown]

NARRATIVE: CASE EVENT DATE: 20230826
